FAERS Safety Report 5003182-6 (Version None)
Quarter: 2006Q2

REPORT INFORMATION
  Report Type: 
  Country: None (occurrence: None)
  Receive Date: 20060510
  Receipt Date: 20060504
  Transmission Date: 20061013
  Serious: Yes (Hospitalization)
  Sender: FDA-Public Use
  Company Number: 200610549BNE

PATIENT
  Age: 64 Year
  Sex: Male
  Weight: 62.2 kg

DRUGS (6)
  1. SORAFENIB [Suspect]
     Indication: METASTATIC MALIGNANT MELANOMA
     Dosage: 400 MG, BID, ORAL
     Route: 048
     Dates: start: 20050601
  2. DACARBAZINE [Suspect]
     Indication: METASTATIC MALIGNANT MELANOMA
     Dates: start: 20060426
  3. WARFARIN SODIUM [Concomitant]
  4. ONDANSETRON HCL [Concomitant]
  5. DOMPERIDONE [Concomitant]
  6. AMLODIPINE [Concomitant]

REACTIONS (4)
  - CONFUSIONAL STATE [None]
  - HYPERTENSION [None]
  - NAUSEA [None]
  - ORAL INTAKE REDUCED [None]
